FAERS Safety Report 7422675-5 (Version None)
Quarter: 2011Q2

REPORT INFORMATION
  Report Type: 
  Country: None (occurrence: None)
  Receive Date: 20110419
  Receipt Date: 20110407
  Transmission Date: 20111010
  Serious: Yes (Hospitalization)
  Sender: FDA-Public Use
  Company Number: US-ELI_LILLY_AND_COMPANY-US201104002295

PATIENT
  Sex: Male

DRUGS (8)
  1. CYMBALTA [Suspect]
     Indication: ANXIETY
     Dosage: 60 MG, QD
     Route: 065
     Dates: start: 20020101, end: 20040101
  2. WELLBUTRIN [Concomitant]
     Indication: DEPRESSION
     Dosage: UNK, UNKNOWN
     Route: 065
  3. CYMBALTA [Suspect]
     Dosage: 40 MG, UNKNOWN
     Route: 065
  4. ZOCOR [Concomitant]
     Dosage: UNK, UNKNOWN
     Route: 065
  5. NUVIGIL [Concomitant]
     Indication: DEPRESSION
     Dosage: UNK, UNKNOWN
     Route: 065
  6. CYMBALTA [Suspect]
     Dosage: 60 MG, QD
     Route: 065
     Dates: end: 20110405
  7. OXYCODONE [Concomitant]
     Dosage: UNK, UNKNOWN
     Route: 065
  8. PROVIGIL [Concomitant]
     Indication: DEPRESSION
     Dosage: UNK, UNKNOWN
     Route: 065

REACTIONS (4)
  - MUSCULOSKELETAL STIFFNESS [None]
  - PAIN [None]
  - SPINAL CORD COMPRESSION [None]
  - WITHDRAWAL SYNDROME [None]
